FAERS Safety Report 6696193-6 (Version None)
Quarter: 2010Q2

REPORT INFORMATION
  Report Type: 
  Country: None (occurrence: None)
  Receive Date: 20100426
  Receipt Date: 20100316
  Transmission Date: 20101027
  Serious: Yes (Death, Other)
  Sender: FDA-Public Use
  Company Number: US-BAXTER-2008BH001540

PATIENT
  Age: 72 Year
  Sex: Male
  Weight: 58 kg

DRUGS (13)
  1. HEPARIN SODIUM INJECTION [Suspect]
     Indication: HAEMODIALYSIS
     Route: 040
     Dates: start: 20071227, end: 20071227
  2. HEPARIN SODIUM INJECTION [Suspect]
     Route: 010
     Dates: start: 20071227, end: 20071227
  3. HEPARIN SODIUM INJECTION [Suspect]
     Route: 065
     Dates: start: 20070101, end: 20070101
  4. HEPARIN SODIUM INJECTION [Suspect]
     Route: 065
     Dates: start: 20070101, end: 20070101
  5. HEPARIN SODIUM INJECTION [Suspect]
     Route: 065
     Dates: start: 20070101, end: 20070101
  6. EPOGEN [Concomitant]
     Indication: DRUG USE FOR UNKNOWN INDICATION
     Route: 065
  7. LOPRESSOR [Concomitant]
     Indication: HYPERTENSION
     Route: 048
  8. TUMS [Concomitant]
     Indication: DRUG USE FOR UNKNOWN INDICATION
     Route: 048
  9. MULTI-VITAMINS [Concomitant]
     Indication: DRUG USE FOR UNKNOWN INDICATION
     Route: 065
  10. AMLODIPINE [Concomitant]
     Indication: DRUG USE FOR UNKNOWN INDICATION
     Route: 048
  11. PREDNISONE [Concomitant]
     Indication: DRUG USE FOR UNKNOWN INDICATION
     Route: 048
  12. ACETYLSALICYLIC ACID [Concomitant]
     Indication: DRUG USE FOR UNKNOWN INDICATION
     Route: 048
  13. COLACE [Concomitant]
     Indication: DRUG USE FOR UNKNOWN INDICATION
     Route: 048

REACTIONS (5)
  - ENDOCARDITIS BACTERIAL [None]
  - HYPERHIDROSIS [None]
  - HYPOTENSION [None]
  - RESTLESSNESS [None]
  - SEPTIC EMBOLUS [None]
